FAERS Safety Report 9960791 (Version 1)
Quarter: 2014Q1

REPORT INFORMATION
  Report Type: Report from Study
  Country: US (occurrence: US)
  Receive Date: 20140305
  Receipt Date: 20140305
  Transmission Date: 20141002
  Serious: No
  Sender: FDA-Public Use
  Company Number: US-ABBVIE-13P-163-1109021-00

PATIENT
  Age: 30 Year
  Sex: Female
  Weight: 122.58 kg

DRUGS (5)
  1. HUMIRA [Suspect]
     Indication: PSORIASIS
     Dates: start: 200811, end: 201212
  2. HUMIRA [Suspect]
     Dates: start: 201212, end: 20130530
  3. HUMIRA [Suspect]
     Dates: start: 201306
  4. ALBUTEROL [Concomitant]
     Indication: PRODUCT USED FOR UNKNOWN INDICATION
     Route: 055
  5. PULMOCORT [Concomitant]
     Indication: PRODUCT USED FOR UNKNOWN INDICATION
     Route: 055

REACTIONS (2)
  - Sinusitis [Recovered/Resolved]
  - Psoriasis [Recovered/Resolved]
